FAERS Safety Report 9040859 (Version 1)
Quarter: 2013Q1

REPORT INFORMATION
  Report Type: Spontaneous
  Country: US (occurrence: None)
  Receive Date: 20130123
  Receipt Date: 20130123
  Transmission Date: 20140127
  Serious: Yes (Hospitalization)
  Sender: FDA-Public Use
  Company Number: None

PATIENT
  Age: 69 Year
  Sex: Female
  Weight: 79.8 kg

DRUGS (1)
  1. SIMVASTATIN [Suspect]
     Indication: HYPERLIPIDAEMIA
     Dosage: MG   PO
     Route: 048
     Dates: start: 20051006

REACTIONS (4)
  - Dysuria [None]
  - Diplegia [None]
  - Hypokalaemia [None]
  - Rhabdomyolysis [None]
